FAERS Safety Report 7913559-4 (Version None)
Quarter: 2011Q4

REPORT INFORMATION
  Report Type: 
  Country: None (occurrence: None)
  Receive Date: 20111115
  Receipt Date: 20111103
  Transmission Date: 20120403
  Serious: Yes (Hospitalization)
  Sender: FDA-Public Use
  Company Number: US-JNJFOC-20111101593

PATIENT
  Sex: Male
  Weight: 80.29 kg

DRUGS (23)
  1. LISINOPRIL [Concomitant]
     Indication: BLOOD TRIGLYCERIDES
     Route: 048
  2. FOSAMAX [Concomitant]
     Indication: BONE DISORDER
     Route: 048
  3. XANAX [Concomitant]
     Indication: NERVOUSNESS
     Route: 048
  4. FUROSEMIDE [Concomitant]
     Indication: OEDEMA
     Route: 048
  5. HYDROCODONE BITARTRATE [Concomitant]
     Indication: PAIN
     Route: 048
  6. POTASSIUM [Concomitant]
     Indication: MINERAL SUPPLEMENTATION
     Route: 048
  7. CRESTOR [Concomitant]
     Indication: BLOOD CHOLESTEROL
     Route: 048
  8. VENLAFAXINE HCL [Concomitant]
     Indication: DEPRESSION
     Route: 048
  9. WELCHOL [Concomitant]
     Indication: FUNCTIONAL GASTROINTESTINAL DISORDER
     Route: 049
  10. REQUIP [Concomitant]
     Indication: RESTLESS LEGS SYNDROME
     Route: 048
  11. GEMFIBROZIL [Concomitant]
     Indication: CARDIAC DISORDER
     Route: 048
  12. ATARAX [Concomitant]
     Indication: PRURITUS
     Route: 048
  13. REMICADE [Suspect]
     Indication: ARTHRITIS
     Route: 042
     Dates: start: 20080401
  14. ALLEGRA [Concomitant]
     Indication: MULTIPLE ALLERGIES
     Route: 048
  15. CYCLOBENZAPRINE [Concomitant]
     Indication: MUSCLE SPASMS
     Route: 048
  16. PRILOSEC [Concomitant]
     Indication: GASTROOESOPHAGEAL REFLUX DISEASE
     Route: 048
  17. TOPROL-XL [Concomitant]
     Indication: CARDIAC DISORDER
     Route: 048
  18. AMBIEN [Concomitant]
     Indication: SLEEP DISORDER
     Route: 048
  19. ASPIRIN [Concomitant]
     Indication: CARDIOVASCULAR EVENT PROPHYLAXIS
     Route: 048
  20. DILTIAZEM HCL [Concomitant]
     Indication: CARDIOVASCULAR EVENT PROPHYLAXIS
     Route: 048
  21. FLOMAX [Concomitant]
     Indication: PROSTATIC DISORDER
     Route: 048
  22. MAXIVISION [Concomitant]
     Indication: MACULAR DEGENERATION
     Route: 048
  23. DOXEPIN [Concomitant]
     Indication: SLEEP DISORDER
     Route: 048

REACTIONS (6)
  - VIRAL INFECTION [None]
  - SKIN LESION [None]
  - FALL [None]
  - PYREXIA [None]
  - PNEUMONIA [None]
  - PAIN [None]
